FAERS Safety Report 18060870 (Version 1)
Quarter: 2020Q3

REPORT INFORMATION
  Report Type: Spontaneous
  Country: AU (occurrence: AU)
  Receive Date: 20200723
  Receipt Date: 20200723
  Transmission Date: 20201103
  Serious: Yes (Hospitalization)
  Sender: FDA-Public Use
  Company Number: AU-MYLANLABS-2020M1066340

PATIENT
  Age: 61 Year
  Sex: Male

DRUGS (6)
  1. NIVOLUMAB [Concomitant]
     Active Substance: NIVOLUMAB
     Indication: SQUAMOUS CELL CARCINOMA OF LUNG
     Dosage: 240 MILLIGRAM, BIWEEKLY, INFUSION
  2. LORATADINE. [Concomitant]
     Active Substance: LORATADINE
     Indication: INFUSION RELATED HYPERSENSITIVITY REACTION
     Route: 065
  3. RANITIDINE. [Suspect]
     Active Substance: RANITIDINE
     Indication: INFUSION RELATED HYPERSENSITIVITY REACTION
     Route: 065
  4. SALBUTAMOL [Suspect]
     Active Substance: ALBUTEROL
     Indication: INFUSION RELATED HYPERSENSITIVITY REACTION
     Dosage: NEBULISED
  5. HYDROCORTISONE. [Suspect]
     Active Substance: HYDROCORTISONE
     Indication: INFUSION RELATED HYPERSENSITIVITY REACTION
     Route: 065
  6. PARACETAMOL [Concomitant]
     Active Substance: ACETAMINOPHEN
     Indication: INFUSION RELATED HYPERSENSITIVITY REACTION
     Route: 065

REACTIONS (1)
  - Drug ineffective [Unknown]
